FAERS Safety Report 23265793 (Version 1)
Quarter: 2023Q4

REPORT INFORMATION
  Report Type: Spontaneous
  Country: DO (occurrence: DO)
  Receive Date: 20231206
  Receipt Date: 20231206
  Transmission Date: 20240110
  Serious: Yes (Other)
  Sender: FDA-Public Use
  Company Number: DO-SA-SAC20231204000492

PATIENT
  Age: 68 Year
  Sex: Male

DRUGS (1)
  1. LANTUS [Suspect]
     Active Substance: INSULIN GLARGINE
     Indication: Type 1 diabetes mellitus
     Dosage: 22 IU, QD
     Route: 058
     Dates: start: 2010

REACTIONS (3)
  - Cataract [Unknown]
  - Hypoacusis [Unknown]
  - Vision blurred [Unknown]

NARRATIVE: CASE EVENT DATE: 20200101
